FAERS Safety Report 7134102-6 (Version None)
Quarter: 2010Q4

REPORT INFORMATION
  Report Type: 
  Country: None (occurrence: None)
  Receive Date: 20101203
  Receipt Date: 20101126
  Transmission Date: 20110411
  Serious: Yes (Death)
  Sender: FDA-Public Use
  Company Number: DE-JNJFOC-20101101864

PATIENT
  Age: 67 Year
  Sex: Male

DRUGS (7)
  1. RISPERDAL [Suspect]
     Indication: ILL-DEFINED DISORDER
     Route: 048
     Dates: start: 20090924
  2. TAVOR [Suspect]
     Indication: VASCULAR DEMENTIA
     Route: 048
  3. TAVOR [Suspect]
     Route: 048
  4. TAVOR [Suspect]
     Route: 048
  5. NEXIUM [Concomitant]
     Indication: ILL-DEFINED DISORDER
     Route: 048
  6. AMLODIPINE [Concomitant]
     Indication: ILL-DEFINED DISORDER
     Route: 048
  7. LASIX [Concomitant]
     Indication: ILL-DEFINED DISORDER
     Route: 048

REACTIONS (3)
  - DIARRHOEA [None]
  - PNEUMONIA [None]
  - VOMITING [None]
